FAERS Safety Report 14628053 (Version 1)
Quarter: 2018Q1

REPORT INFORMATION
  Report Type: Spontaneous
  Country: FR (occurrence: FR)
  Receive Date: 20180312
  Receipt Date: 20180312
  Transmission Date: 20180509
  Serious: Yes (Hospitalization)
  Sender: FDA-Public Use
  Company Number: FR-ALLERGAN-1813188US

PATIENT
  Age: 25 Year
  Sex: Female

DRUGS (11)
  1. DAFALGAN CODEINE [Concomitant]
     Active Substance: ACETAMINOPHEN\CODEINE PHOSPHATE
     Indication: CENTRAL PAIN SYNDROME
     Route: 048
     Dates: start: 201711
  2. RIVOTRIL [Suspect]
     Active Substance: CLONAZEPAM
     Indication: CENTRAL PAIN SYNDROME
     Dosage: 2,5 MG/ML, SOLUTION BUVABLE EN GOUTTE
     Route: 048
  3. CYMBALTA [Concomitant]
     Active Substance: DULOXETINE HYDROCHLORIDE
     Indication: CENTRAL PAIN SYNDROME
     Route: 048
     Dates: start: 2015
  4. THERALENE [Concomitant]
     Active Substance: TRIMEPRAZINE
     Indication: SLEEP DISORDER
     Dosage: 4 POUR CENT, SOLLUTION BUVABLE EN GOUTTES
     Route: 048
     Dates: start: 201801
  5. ATARAX [Suspect]
     Active Substance: HYDROXYZINE HYDROCHLORIDE
     Indication: ANXIETY DISORDER
     Route: 048
     Dates: start: 201711
  6. MARINOL [Suspect]
     Active Substance: DRONABINOL
     Indication: CENTRAL PAIN SYNDROME
     Route: 048
     Dates: start: 201703
  7. LEVOCARNIL [Concomitant]
     Active Substance: LEVOCARNITINE
     Indication: CARNITINE DEFICIENCY
     Route: 048
     Dates: start: 201711
  8. ACUPAN [Suspect]
     Active Substance: NEFOPAM HYDROCHLORIDE
     Indication: CENTRAL PAIN SYNDROME
     Dosage: UNK, SINGLE
     Route: 058
     Dates: start: 201711
  9. DONORMYL (DOXYLAMINE SUCCINATE) [Suspect]
     Active Substance: DOXYLAMINE SUCCINATE
     Indication: SLEEP DISORDER
     Route: 048
     Dates: start: 201801
  10. MELATONINE [Concomitant]
     Active Substance: MELATONIN
     Indication: SLEEP DISORDER
     Dosage: 3 MG, QD
     Route: 048
     Dates: start: 20180119
  11. ESCITALOPRAM OXALATE - BP [Suspect]
     Active Substance: ESCITALOPRAM OXALATE
     Indication: ANXIETY
     Route: 048
     Dates: start: 201706

REACTIONS (2)
  - Loss of consciousness [Recovered/Resolved]
  - Malaise [Recovered/Resolved]

NARRATIVE: CASE EVENT DATE: 20171026
